FAERS Safety Report 8199702-3 (Version None)
Quarter: 2012Q1

REPORT INFORMATION
  Report Type: 
  Country: None (occurrence: None)
  Receive Date: 20120311
  Receipt Date: 20120301
  Transmission Date: 20120608
  Serious: Yes (Other)
  Sender: FDA-Public Use
  Company Number: US-ASTRAZENECA-2012SE13377

PATIENT
  Age: 52 Year
  Sex: Female

DRUGS (21)
  1. CHLORDIAZEPOXIDE HCL W/ CLIDINIUM BROMIDE [Concomitant]
     Dosage: 5-2.5 MG
     Route: 048
  2. DT (DIPHTERIA-TETANUS) TOXOIDS [Concomitant]
  3. SYMBICORT [Suspect]
     Dosage: 160/4.5 MCG, UNKKNOWN
     Route: 055
  4. FUROSEMIDE [Concomitant]
     Route: 048
  5. PNEUMONIA VACCINE [Concomitant]
  6. ALLOPURINOL [Concomitant]
     Route: 048
  7. METFORMIN HYDROCHLORIDE [Concomitant]
     Route: 048
  8. FE C PLUS [Concomitant]
     Dosage: 100-250-25 1 MG-MG-MCG -MG
     Route: 048
  9. CYANOCOBALAMIN [Concomitant]
     Dosage: 3-35-2 MG
     Route: 048
  10. FLUTICASONE PROPIONATE [Concomitant]
     Dosage: 50 MCG
     Route: 045
  11. CIPROFLOXACIN [Concomitant]
     Route: 048
  12. SINGULAIR [Concomitant]
     Route: 048
  13. CEFDINIR [Concomitant]
     Route: 048
  14. CEPHALEXIN [Concomitant]
     Route: 048
  15. SYNTHROID [Concomitant]
     Dosage: 200 MCG
     Route: 048
  16. FLU VACCINE [Concomitant]
  17. HYDROCODONE BITARTRATE AND ACETAMINOPHEN [Concomitant]
     Dosage: 5-500 MG
     Route: 048
  18. BUPROPION HCL [Concomitant]
     Route: 048
  19. MELOXICAM [Concomitant]
     Route: 048
  20. PREDNISONE [Concomitant]
     Route: 048
  21. DEXILANT [Concomitant]
     Route: 048

REACTIONS (22)
  - MYOSITIS [None]
  - MITRAL VALVE DISEASE [None]
  - RESPIRATORY DISORDER [None]
  - ABDOMINAL PAIN [None]
  - TYPE 2 DIABETES MELLITUS [None]
  - ANAL FISSURE [None]
  - ARTERIOSCLEROSIS [None]
  - HYPERTENSION [None]
  - BLADDER DILATATION [None]
  - LOWER RESPIRATORY TRACT INFLAMMATION [None]
  - DERMATITIS CONTACT [None]
  - VOMITING [None]
  - MYALGIA [None]
  - ARTHRALGIA [None]
  - PNEUMOTHORAX [None]
  - HYPOTHYROIDISM [None]
  - NAUSEA [None]
  - CARDIAC DISORDER [None]
  - HEADACHE [None]
  - ATRIAL FIBRILLATION [None]
  - ASTHMA [None]
  - PULMONARY CONGESTION [None]
